FAERS Safety Report 10230038 (Version 1)
Quarter: 2014Q2

REPORT INFORMATION
  Report Type: Spontaneous
  Country: US (occurrence: None)
  Receive Date: 20140610
  Receipt Date: 20140610
  Transmission Date: 20141212
  Serious: No
  Sender: FDA-Public Use
  Company Number: None

PATIENT
  Age: 15 Year
  Sex: Female
  Weight: 78.47 kg

DRUGS (7)
  1. ABILIFY [Suspect]
     Dosage: 2.5 MG (1/2 TAB OF 5 MG) BID ORAL
     Route: 048
     Dates: start: 20140531, end: 20140604
  2. WELLBUTRIN SR [Concomitant]
  3. TRILEPTAL [Concomitant]
  4. TRAZODONE [Concomitant]
  5. ADDERALL XR [Concomitant]
  6. PROZAC [Concomitant]
  7. RISPERDAL [Concomitant]

REACTIONS (2)
  - Nausea [None]
  - Vomiting [None]
